FAERS Safety Report 8022612-9 (Version None)
Quarter: 2012Q1

REPORT INFORMATION
  Report Type: 
  Country: None (occurrence: None)
  Receive Date: 20120104
  Receipt Date: 20111227
  Transmission Date: 20120608
  Serious: Yes (Other)
  Sender: FDA-Public Use
  Company Number: JP-GLAXOSMITHKLINE-B0763905A

PATIENT
  Sex: Female

DRUGS (8)
  1. AKINETON [Concomitant]
     Route: 065
  2. LAMICTAL [Suspect]
     Dosage: 50MG PER DAY
     Route: 048
     Dates: start: 20111025, end: 20111112
  3. LITHIUM CARBONATE [Concomitant]
     Indication: AFFECT LABILITY
     Dosage: 800MG PER DAY
     Route: 048
  4. SEROQUEL [Concomitant]
     Route: 048
  5. ZYPREXA [Concomitant]
     Indication: AFFECT LABILITY
     Dosage: 20MG PER DAY
     Route: 048
  6. LAMICTAL [Suspect]
     Indication: BIPOLAR DISORDER
     Dosage: 25MG PER DAY
     Route: 048
     Dates: start: 20111011, end: 20111024
  7. UNKNOWN DRUG [Concomitant]
     Route: 048
  8. SILECE [Concomitant]
     Dosage: 2MG PER DAY
     Route: 048

REACTIONS (9)
  - RASH [None]
  - NAUSEA [None]
  - PRURITUS [None]
  - WHITE BLOOD CELL COUNT INCREASED [None]
  - ALANINE AMINOTRANSFERASE INCREASED [None]
  - VOMITING [None]
  - ABDOMINAL PAIN [None]
  - ASPARTATE AMINOTRANSFERASE INCREASED [None]
  - BLOOD LACTATE DEHYDROGENASE INCREASED [None]
